FAERS Safety Report 15551172 (Version 2)
Quarter: 2018Q4

REPORT INFORMATION
  Report Type: Spontaneous
  Country: US (occurrence: US)
  Receive Date: 20181025
  Receipt Date: 20181220
  Transmission Date: 20190205
  Serious: Yes (Hospitalization, Other)
  Sender: FDA-Public Use
  Company Number: US-ASTRAZENECA-2018SF36862

PATIENT
  Age: 55 Year
  Sex: Female
  Weight: 105.7 kg

DRUGS (4)
  1. FLONASE [Concomitant]
     Active Substance: FLUTICASONE PROPIONATE
     Route: 045
  2. ALBUTEROL. [Concomitant]
     Active Substance: ALBUTEROL
     Indication: PROPHYLAXIS
     Dosage: AS REQUIRED
     Route: 055
  3. SYMBICORT [Suspect]
     Active Substance: BUDESONIDE\FORMOTEROL FUMARATE DIHYDRATE
     Dosage: 80/4.5 MCG 2 PUFFS, TWO TIMES A DAY
     Route: 055
     Dates: start: 2007
  4. LEVEMER [Concomitant]
     Indication: DIABETES MELLITUS
     Route: 065

REACTIONS (31)
  - Bladder disorder [Not Recovered/Not Resolved]
  - Non-alcoholic steatohepatitis [Not Recovered/Not Resolved]
  - Diabetes mellitus [Unknown]
  - Wrong technique in device usage process [Unknown]
  - Neuropathy peripheral [Not Recovered/Not Resolved]
  - Localised infection [Unknown]
  - Dysuria [Not Recovered/Not Resolved]
  - Splenomegaly [Not Recovered/Not Resolved]
  - Heart valve incompetence [Not Recovered/Not Resolved]
  - Intracardiac thrombus [Unknown]
  - Blister [Unknown]
  - Retinal haemorrhage [Unknown]
  - Vaginal haemorrhage [Unknown]
  - Lung disorder [Unknown]
  - Hepatic cirrhosis [Not Recovered/Not Resolved]
  - Device issue [Unknown]
  - Post procedural fistula [Not Recovered/Not Resolved]
  - Sjogren^s syndrome [Unknown]
  - Colon cancer stage II [Unknown]
  - Thrombosis [Not Recovered/Not Resolved]
  - Foot deformity [Unknown]
  - Rosacea [Unknown]
  - Chronic obstructive pulmonary disease [Unknown]
  - Asthma [Unknown]
  - Intentional device misuse [Unknown]
  - Limb injury [Unknown]
  - Platelet count decreased [Not Recovered/Not Resolved]
  - Arthritis [Unknown]
  - Cataract [Unknown]
  - Rectal haemorrhage [Unknown]
  - Foreign body [Not Recovered/Not Resolved]

NARRATIVE: CASE EVENT DATE: 2012
